FAERS Safety Report 11181303 (Version 1)
Quarter: 2015Q2

REPORT INFORMATION
  Report Type: Spontaneous
  Country: US (occurrence: None)
  Receive Date: 20150610
  Receipt Date: 20150610
  Transmission Date: 20150821
  Serious: Yes (Hospitalization)
  Sender: FDA-Public Use
  Company Number: None

PATIENT
  Age: 69 Year
  Sex: Female
  Weight: 56.8 kg

DRUGS (16)
  1. LEVAQUIN [Suspect]
     Active Substance: LEVOFLOXACIN
     Indication: DIVERTICULITIS
     Route: 042
     Dates: start: 20150529, end: 20150531
  2. LEVAQUIN [Suspect]
     Active Substance: LEVOFLOXACIN
     Indication: PNEUMONIA
     Route: 042
     Dates: start: 20150529, end: 20150531
  3. ASPIRIN. [Concomitant]
     Active Substance: ASPIRIN
  4. SOLU-MEDROL [Concomitant]
     Active Substance: METHYLPREDNISOLONE SODIUM SUCCINATE
  5. TOPROL XL [Concomitant]
     Active Substance: METOPROLOL SUCCINATE
  6. LOSARTAN [Concomitant]
     Active Substance: LOSARTAN
  7. FOLIC ACID. [Concomitant]
     Active Substance: FOLIC ACID
  8. ROBITUSSIN AC [Concomitant]
  9. MULTIVITAMIN [Concomitant]
     Active Substance: VITAMINS
  10. LASIX [Concomitant]
     Active Substance: FUROSEMIDE
  11. MUCINEX [Concomitant]
     Active Substance: GUAIFENESIN
  12. FAMOTIDINE. [Concomitant]
     Active Substance: FAMOTIDINE
  13. LOVENOX [Concomitant]
     Active Substance: ENOXAPARIN SODIUM
  14. VANCOMYCIN [Concomitant]
     Active Substance: VANCOMYCIN
  15. FLAGYL [Concomitant]
     Active Substance: METRONIDAZOLE\METRONIDAZOLE HYDROCHLORIDE
  16. DUONEB [Concomitant]
     Active Substance: ALBUTEROL SULFATE\IPRATROPIUM BROMIDE

REACTIONS (3)
  - Pain [None]
  - Weight bearing difficulty [None]
  - Tendon pain [None]

NARRATIVE: CASE EVENT DATE: 20150531
